FAERS Safety Report 15343164 (Version 1)
Quarter: 2018Q3

REPORT INFORMATION
  Report Type: Spontaneous
  Country: FR (occurrence: FR)
  Receive Date: 20180903
  Receipt Date: 20180903
  Transmission Date: 20181010
  Serious: Yes (Other)
  Sender: FDA-Public Use
  Company Number: FR-ROCHE-2178787

PATIENT
  Age: 65 Year
  Sex: Male

DRUGS (2)
  1. DIAZEPAM. [Suspect]
     Active Substance: DIAZEPAM
     Indication: CHEMICAL SUBMISSION
     Dosage: DATE OF MOST RECENT DOSE: 18/AUG/2017
     Route: 048
     Dates: start: 20170801
  2. BROMAZEPAM [Suspect]
     Active Substance: BROMAZEPAM
     Indication: CHEMICAL SUBMISSION
     Dosage: DATE OF MOST RECENT DOSE: 18/AUG/2017
     Route: 048
     Dates: start: 20170801

REACTIONS (1)
  - Victim of chemical submission [Recovered/Resolved]

NARRATIVE: CASE EVENT DATE: 20170801
